FAERS Safety Report 9364178 (Version 1)
Quarter: 2013Q2

REPORT INFORMATION
  Report Type: Spontaneous
  Country: JP (occurrence: JP)
  Receive Date: 20130624
  Receipt Date: 20130624
  Transmission Date: 20140414
  Serious: Yes (Hospitalization)
  Sender: FDA-Public Use
  Company Number: JP-PFIZER INC-2013182437

PATIENT
  Age: 66 Year
  Sex: Female

DRUGS (5)
  1. ZITHROMAC [Suspect]
     Indication: OROPHARYNGEAL PAIN
     Dosage: UNK
     Route: 048
     Dates: start: 20130611, end: 20130612
  2. LOXOMARIN [Concomitant]
  3. CISDYNE [Concomitant]
  4. ASVERIN [Concomitant]
  5. AZUNOL [Concomitant]
     Route: 049

REACTIONS (1)
  - Oculomucocutaneous syndrome [Not Recovered/Not Resolved]
